FAERS Safety Report 17527177 (Version 1)
Quarter: 2020Q1

REPORT INFORMATION
  Report Type: Report from Study
  Country: None (occurrence: CO)
  Receive Date: 20200310
  Receipt Date: 20200310
  Transmission Date: 20200409
  Serious: Yes (Other)
  Sender: FDA-Public Use
  Company Number: CO-ABBVIE-20K-036-3262955-00

PATIENT
  Age: 38 Year
  Sex: Female
  Weight: 67 kg

DRUGS (1)
  1. HUMIRA [Suspect]
     Active Substance: ADALIMUMAB
     Indication: PSORIASIS
     Route: 058
     Dates: start: 20190425, end: 20190912

REACTIONS (8)
  - Pain of skin [Not Recovered/Not Resolved]
  - Crying [Not Recovered/Not Resolved]
  - Arthralgia [Unknown]
  - Depression [Unknown]
  - Skin plaque [Unknown]
  - Musculoskeletal discomfort [Unknown]
  - Rash [Not Recovered/Not Resolved]
  - Insomnia [Unknown]

NARRATIVE: CASE EVENT DATE: 202001
